FAERS Safety Report 23503206 (Version 1)
Quarter: 2024Q1

REPORT INFORMATION
  Report Type: Spontaneous
  Country: CN (occurrence: CN)
  Receive Date: 20240208
  Receipt Date: 20240208
  Transmission Date: 20240410
  Serious: Yes (Hospitalization, Other)
  Sender: FDA-Public Use
  Company Number: CN-009507513-2402CHN002831

PATIENT
  Age: 70 Year
  Sex: Male
  Weight: 50 kg

DRUGS (2)
  1. KEYTRUDA [Suspect]
     Active Substance: PEMBROLIZUMAB
     Indication: Renal cancer metastatic
     Dosage: 0.4 GRAM, ONCE
     Route: 041
     Dates: start: 20240109, end: 20240109
  2. SODIUM CHLORIDE [Concomitant]
     Active Substance: SODIUM CHLORIDE
     Indication: Medication dilution
     Dosage: 100 MILLILITER, ONCE
     Route: 041
     Dates: start: 20240109, end: 20240109

REACTIONS (2)
  - Cholestatic liver injury [Recovering/Resolving]
  - Immune-mediated hepatitis [Recovering/Resolving]

NARRATIVE: CASE EVENT DATE: 20240121
